FAERS Safety Report 7495575-2 (Version None)
Quarter: 2011Q2

REPORT INFORMATION
  Report Type: 
  Country: None (occurrence: None)
  Receive Date: 20110523
  Receipt Date: 20110509
  Transmission Date: 20111010
  Serious: No
  Sender: FDA-Public Use
  Company Number: US-JNJFOC-20110506039

PATIENT
  Sex: Female
  Weight: 72.58 kg

DRUGS (7)
  1. XANAX [Concomitant]
     Indication: SLEEP DISORDER THERAPY
     Route: 048
  2. FENTANYL-100 [Suspect]
     Indication: PAIN
     Route: 062
     Dates: start: 20101201
  3. PERCOCET [Concomitant]
     Indication: BREAKTHROUGH PAIN
     Route: 048
  4. FLUORESCEIN SODIUM [Concomitant]
     Indication: MIGRAINE
     Route: 048
  5. SOMA [Concomitant]
     Indication: MUSCLE SPASMS
     Route: 048
  6. CRESTOR [Concomitant]
     Indication: BLOOD CHOLESTEROL INCREASED
     Route: 048
  7. ZANTAC [Concomitant]
     Indication: DYSPEPSIA
     Route: 048

REACTIONS (6)
  - APPLICATION SITE PRURITUS [None]
  - INAPPROPRIATE SCHEDULE OF DRUG ADMINISTRATION [None]
  - NONSPECIFIC REACTION [None]
  - APPLICATION SITE IRRITATION [None]
  - HYPERSENSITIVITY [None]
  - TREATMENT NONCOMPLIANCE [None]
